FAERS Safety Report 10050032 (Version 2)
Quarter: 2014Q2

REPORT INFORMATION
  Report Type: Spontaneous
  Country: US (occurrence: US)
  Receive Date: 20140401
  Receipt Date: 20140401
  Transmission Date: 20141212
  Serious: Yes (Congenital Anomaly)
  Sender: FDA-Public Use
  Company Number: US-PFIZER INC-2005120564

PATIENT
  Sex: Male
  Weight: 2.56 kg

DRUGS (3)
  1. VIRACEPT [Suspect]
     Indication: HIV INFECTION
     Dosage: UNK
     Route: 064
     Dates: start: 1996
  2. DDI [Suspect]
     Indication: HIV INFECTION
     Dosage: UNK
     Route: 064
     Dates: start: 1996
  3. RETROVIR [Suspect]
     Indication: HIV INFECTION
     Route: 064
     Dates: start: 1996

REACTIONS (4)
  - Maternal exposure during pregnancy [Unknown]
  - Hydronephrosis [Unknown]
  - Hypospadias [Unknown]
  - Hyponatraemia [Unknown]
